FAERS Safety Report 25067918 (Version 1)
Quarter: 2025Q1

REPORT INFORMATION
  Report Type: Spontaneous
  Country: SE (occurrence: SE)
  Receive Date: 20250312
  Receipt Date: 20250312
  Transmission Date: 20250408
  Serious: Yes (Other)
  Sender: STRIDES
  Company Number: SE-STRIDES ARCOLAB LIMITED-2025SP003087

PATIENT
  Age: 14 Year
  Sex: Male

DRUGS (4)
  1. ETOPOSIDE [Suspect]
     Active Substance: ETOPOSIDE
     Indication: Hodgkin^s disease
     Route: 065
  2. PREDNISOLONE [Suspect]
     Active Substance: PREDNISOLONE
     Indication: Hodgkin^s disease
     Route: 065
  3. DOXORUBICIN [Suspect]
     Active Substance: DOXORUBICIN
     Indication: Hodgkin^s disease
     Route: 065
  4. VINCRISTINE [Suspect]
     Active Substance: VINCRISTINE
     Indication: Hodgkin^s disease
     Route: 065

REACTIONS (3)
  - Disease progression [Unknown]
  - Drug ineffective [Unknown]
  - Drug ineffective for unapproved indication [Unknown]
